FAERS Safety Report 9904467 (Version 2)
Quarter: 2014Q1

REPORT INFORMATION
  Report Type: Spontaneous
  Country: US (occurrence: US)
  Receive Date: 20140218
  Receipt Date: 20140218
  Transmission Date: 20141002
  Serious: No
  Sender: FDA-Public Use
  Company Number: US-HORIZON-DUE-0064-2013

PATIENT
  Age: 67 Year
  Sex: Male

DRUGS (11)
  1. DUEXIS [Suspect]
     Indication: OSTEOARTHRITIS
     Route: 048
     Dates: start: 20131210, end: 20131211
  2. ACYCLOVIR [Concomitant]
  3. ATENOLOL [Concomitant]
  4. LIPITOR [Concomitant]
  5. ALERTEC [Concomitant]
  6. CALCIUM [Concomitant]
  7. CENTRUM COMPLETE [Concomitant]
  8. FISH OIL [Concomitant]
  9. FOLIC ACID [Concomitant]
  10. GLUCOSAMINE CHONDROITIN [Concomitant]
  11. OCUVITE [Concomitant]

REACTIONS (2)
  - Urticaria [Recovered/Resolved]
  - Gastrooesophageal reflux disease [Recovered/Resolved]
